FAERS Safety Report 13333579 (Version 1)
Quarter: 2017Q1

REPORT INFORMATION
  Report Type: Spontaneous
  Country: US (occurrence: US)
  Receive Date: 20170314
  Receipt Date: 20170314
  Transmission Date: 20170428
  Serious: Yes (Hospitalization, Other)
  Sender: FDA-Public Use
  Company Number: US-TEVA-748089USA

PATIENT
  Age: 62 Year
  Sex: Female

DRUGS (1)
  1. BACTRIM [Suspect]
     Active Substance: SULFAMETHOXAZOLE\TRIMETHOPRIM
     Dosage: ONE WEEK COURSE OF TWICE A DAY DOUBLE-STRENGTH DOSE
     Route: 065

REACTIONS (3)
  - Pleural effusion [Recovered/Resolved]
  - Lupus-like syndrome [Recovered/Resolved]
  - Cardiac tamponade [Recovered/Resolved]
